FAERS Safety Report 17023617 (Version 2)
Quarter: 2019Q4

REPORT INFORMATION
  Report Type: Spontaneous
  Country: JP (occurrence: JP)
  Receive Date: 20191113
  Receipt Date: 20191113
  Transmission Date: 20200122
  Serious: Yes (Other)
  Sender: FDA-Public Use
  Company Number: JP-ROCHE-2472366

PATIENT
  Sex: Female

DRUGS (6)
  1. AVASTIN [Suspect]
     Active Substance: BEVACIZUMAB
     Indication: RECTAL ADENOCARCINOMA
     Route: 042
  2. AVASTIN [Suspect]
     Active Substance: BEVACIZUMAB
     Route: 042
  3. OXALIPLATIN. [Concomitant]
     Active Substance: OXALIPLATIN
     Indication: RECTAL ADENOCARCINOMA
     Route: 041
  4. IRINOTECAN HYDROCHLORIDE. [Concomitant]
     Active Substance: IRINOTECAN HYDROCHLORIDE
     Indication: RECTAL ADENOCARCINOMA
     Route: 041
  5. XELODA [Suspect]
     Active Substance: CAPECITABINE
     Indication: RECTAL ADENOCARCINOMA
     Route: 048
  6. TS-1 [Concomitant]
     Active Substance: GIMERACIL\OTERACIL\TEGAFUR
     Indication: RECTAL ADENOCARCINOMA
     Dosage: DOSAGE IS UNCERTAIN.
     Route: 048

REACTIONS (2)
  - Lung disorder [Unknown]
  - Hypoalbuminaemia [Unknown]
